FAERS Safety Report 9632047 (Version 1)
Quarter: 2013Q4

REPORT INFORMATION
  Report Type: Spontaneous
  Country: US (occurrence: US)
  Receive Date: 20131018
  Receipt Date: 20131018
  Transmission Date: 20140711
  Serious: Yes (Death)
  Sender: FDA-Public Use
  Company Number: US-BAYER-2013-125704

PATIENT
  Sex: Female

DRUGS (1)
  1. ALKA-SELTZER PLUS SPARKLING ORIGINAL COLD FORMULA [Suspect]
     Indication: NASOPHARYNGITIS
     Dosage: UNK

REACTIONS (1)
  - Haemorrhagic stroke [Fatal]
